FAERS Safety Report 5215871-9 (Version None)
Quarter: 2007Q1

REPORT INFORMATION
  Report Type: 
  Country: None (occurrence: None)
  Receive Date: 20070123
  Receipt Date: 20070115
  Transmission Date: 20070707
  Serious: Yes (Other)
  Sender: FDA-Public Use
  Company Number: GB-GLAXOSMITHKLINE-B0454967A

PATIENT
  Age: 9 Year
  Sex: Female

DRUGS (5)
  1. AUGMENTIN '125' [Suspect]
     Route: 040
     Dates: start: 20061220, end: 20061220
  2. SODIUM CHLORIDE [Suspect]
     Route: 040
  3. WATER FOR INJECTIONS [Suspect]
     Route: 040
  4. BECOTIDE [Concomitant]
     Route: 055
  5. PARACETAMOL [Concomitant]
     Route: 048
     Dates: start: 20061220

REACTIONS (1)
  - ASTHMA [None]
